FAERS Safety Report 7418151-6 (Version None)
Quarter: 2011Q2

REPORT INFORMATION
  Report Type: 
  Country: None (occurrence: None)
  Receive Date: 20110415
  Receipt Date: 20110406
  Transmission Date: 20111010
  Serious: Yes (Hospitalization)
  Sender: FDA-Public Use
  Company Number: GB-ELI_LILLY_AND_COMPANY-GB201005001817

PATIENT
  Sex: Female
  Weight: 82 kg

DRUGS (11)
  1. FOLIC ACID [Concomitant]
     Indication: PROPHYLAXIS
     Dosage: UNK, UNK
     Route: 048
  2. AG-013736(AXITINIB) [Suspect]
     Indication: NON-SMALL CELL LUNG CANCER
     Dosage: 5 MG, DAYS 2-19 EVERY 21 DAYS
     Route: 048
     Dates: start: 20100420, end: 20100422
  3. PARACETAMOL [Concomitant]
     Indication: ANALGESIC THERAPY
     Dosage: 1 G, UNK
     Route: 048
     Dates: start: 20100422
  4. CISPLATIN [Suspect]
     Indication: NON-SMALL CELL LUNG CANCER
     Dosage: 150 MG, EVERY 3 WEEKS
     Route: 042
     Dates: start: 20100419, end: 20100419
  5. DIAZEPAM [Concomitant]
     Indication: ANALGESIC THERAPY
     Dosage: 2 MG, UNK
     Route: 048
     Dates: start: 20100422
  6. CYCLIZINE [Concomitant]
     Dosage: 50 MG, UNK
     Route: 048
     Dates: start: 20100422
  7. ONDANSETRON [Concomitant]
     Indication: ANTIEMETIC SUPPORTIVE CARE
     Dosage: UNK, UNK
     Dates: start: 20100422
  8. CODEINE [Concomitant]
     Indication: ANALGESIC THERAPY
     Dosage: 30 MG, UNK
     Route: 048
     Dates: start: 20100422
  9. DICLOFENAC [Concomitant]
     Indication: ANALGESIC THERAPY
     Dosage: 50 MG, UNK
     Route: 048
     Dates: start: 20100422
  10. PEMETREXED [Suspect]
     Indication: NON-SMALL CELL LUNG CANCER
     Dosage: 1000 MG, EVERY 3 WEEKS
     Route: 042
     Dates: start: 20100419, end: 20100419
  11. ORAMORPH SR [Concomitant]
     Indication: ANALGESIC THERAPY
     Dosage: 10 MG, UNK
     Route: 048
     Dates: start: 20100422

REACTIONS (1)
  - DEHYDRATION [None]
